FAERS Safety Report 7893916-5 (Version None)
Quarter: 2011Q4

REPORT INFORMATION
  Report Type: 
  Country: None (occurrence: None)
  Receive Date: 20111104
  Receipt Date: 20111102
  Transmission Date: 20120403
  Serious: Yes (Other)
  Sender: FDA-Public Use
  Company Number: JP-PFIZER INC-2011244257

PATIENT
  Age: 58 Year
  Sex: Female
  Weight: 47.4 kg

DRUGS (6)
  1. LEVOTHYROXINE SODIUM [Concomitant]
     Indication: THYROIDITIS CHRONIC
     Dosage: UNK
     Route: 048
  2. VARENICLINE TARTRATE [Suspect]
     Dosage: 0.5 MG, 1X/DAY
     Route: 048
     Dates: start: 20100202, end: 20100325
  3. VARENICLINE TARTRATE [Suspect]
     Dosage: 0.5 MG, 2X/DAY
     Route: 048
     Dates: start: 20100130, end: 20100201
  4. DEPAS [Concomitant]
     Indication: MENOPAUSAL SYMPTOMS
     Dosage: 0.5 MG, AS NEEDED
     Route: 048
  5. VARENICLINE TARTRATE [Suspect]
     Indication: NICOTINE DEPENDENCE
     Dosage: 0.5 MG, 1X/DAY
     Route: 048
     Dates: start: 20100127, end: 20100129
  6. CRESTOR [Concomitant]
     Indication: HYPERLIPIDAEMIA
     Dosage: UNK
     Route: 048

REACTIONS (6)
  - ROAD TRAFFIC ACCIDENT [None]
  - HYPERSOMNIA [None]
  - FALL [None]
  - INSOMNIA [None]
  - NAUSEA [None]
  - ALTERED STATE OF CONSCIOUSNESS [None]
